FAERS Safety Report 5124548-X (Version None)
Quarter: 2006Q3

REPORT INFORMATION
  Report Type: 
  Country: None (occurrence: None)
  Receive Date: 20060821
  Receipt Date: 20060619
  Transmission Date: 20061208
  Serious: No
  Sender: FDA-Public Use
  Company Number: TPA2006A00995

PATIENT
  Sex: Male

DRUGS (1)
  1. ROZEREM [Suspect]

REACTIONS (3)
  - INITIAL INSOMNIA [None]
  - MALAISE [None]
  - STOMACH DISCOMFORT [None]
